FAERS Safety Report 16570685 (Version 1)
Quarter: 2019Q3

REPORT INFORMATION
  Report Type: Spontaneous
  Country: DE (occurrence: DE)
  Receive Date: 20190715
  Receipt Date: 20190715
  Transmission Date: 20191004
  Serious: Yes (Hospitalization)
  Sender: FDA-Public Use
  Company Number: DE-TEVA-2019-DE-1076503

PATIENT
  Age: 52 Year
  Sex: Male
  Weight: 71 kg

DRUGS (15)
  1. PANTOPRAZOL [Concomitant]
     Active Substance: PANTOPRAZOLE SODIUM
     Dosage: 40 MG, 1-0-0-0, EVERY OTHER DAY, TABLETS
     Route: 048
  2. CALCIUM [Concomitant]
     Active Substance: CALCIUM
     Dosage: 1 G, 0-1-0-0, TABLET
     Route: 048
  3. VINCRISTINE [Suspect]
     Active Substance: VINCRISTINE
     Dosage: 2 MG, ACCORDING TO SCHEME, MOST RECENTLY ON 26.01.2018, SOLUTION FOR INJECTION / INFUSION
     Route: 042
  4. TOPOTECAN [Suspect]
     Active Substance: TOPOTECAN HYDROCHLORIDE
     Dosage: 1 MG / M2, ACCORDING TO SCHEME, MOST RECENTLY ON 28.01.2018, SOLUTION FOR INJECTION / INFUS
  5. ACTRAPID FLEXPEN 100I.E./ML FERTIGPEN [Concomitant]
     Dosage: 00 IU, AS NEEDED, SOLUTION FOR INJECTION / INFUSION
     Route: 058
  6. ZOLEDRONIC ACID [Concomitant]
     Active Substance: ZOLEDRONIC ACID
     Dosage: 4 MG, EVERY 4 WEEKS, LAST TIME 04.02, SOLUTION FOR INJECTION / INFUSION
     Route: 042
  7. LEVEMIR 1000I.E. 100I.E./ML [Concomitant]
     Dosage: 4 IU, ACCORDING TO PLAN, SOLUTION FOR INJECTION / INFUSION
     Route: 058
  8. COTRIM FORTE 800MG/160MG [Concomitant]
     Dosage: 960 MG, 1-0-0-0, 3X / WEEK, TABLET
     Route: 048
  9. TRAMAL LONG 100MG [Concomitant]
     Dosage: 100 MG, 1-0-1-0,
     Route: 048
  10. CYCLOPHOSPHAMIDE. [Suspect]
     Active Substance: CYCLOPHOSPHAMIDE
     Dosage: 600 MG / M2, ACCORDING TO THE DIAGRAM, MOST RECENTLY ON 27.01.2018, SOLUTION FOR INJECTION / INFUSI
     Route: 042
  11. LOPERAMID [Concomitant]
     Active Substance: LOPERAMIDE
     Dosage: 2 MG, IF NECESSARY, TABLET
     Route: 048
  12. MOVICOL [Concomitant]
     Active Substance: POLYETHYLENE GLYCOL 3350\POTASSIUM CHLORIDE\SODIUM BICARBONATE\SODIUM CHLORIDE
     Dosage: 13.125 MG, 1-0-0-0, BAG
     Route: 048
  13. ONDANSETRON [Concomitant]
     Active Substance: ONDANSETRON
     Dosage: 8 MG, 1-0-1-0,
     Route: 048
  14. METOCLOPRAMID [Concomitant]
     Active Substance: METOCLOPRAMIDE
     Dosage: 10 MG, IF NECESSARY,
     Route: 048
  15. TOREM 10 [Concomitant]
     Active Substance: TORSEMIDE
     Dosage: 10 MG, 1-0-0-0 TABLET
     Route: 048

REACTIONS (2)
  - Pyrexia [Unknown]
  - Fatigue [Unknown]
